FAERS Safety Report 24238662 (Version 1)
Quarter: 2024Q3

REPORT INFORMATION
  Report Type: Spontaneous
  Country: US (occurrence: US)
  Receive Date: 20240822
  Receipt Date: 20240822
  Transmission Date: 20241017
  Serious: No
  Sender: PFIZER
  Company Number: US-PFIZER INC-202400239810

PATIENT
  Age: 17 Year
  Sex: Male
  Weight: 39.2 kg

DRUGS (2)
  1. OXBRYTA [Suspect]
     Active Substance: VOXELOTOR
     Indication: Haemoglobin increased
     Dosage: 900 MG, 1X/DAY (300MG TABLET, THREE TABLETS AT ONCE DAILY)
     Route: 048
     Dates: end: 202408
  2. HYDROXYUREA [Concomitant]
     Active Substance: HYDROXYUREA
     Indication: Sickle cell disease
     Dosage: 1000 MG, 1X/DAY (TWO 500MG CAPSULES)
     Route: 048

REACTIONS (2)
  - Headache [Unknown]
  - Off label use [Unknown]
